FAERS Safety Report 11755129 (Version 1)
Quarter: 2015Q4

REPORT INFORMATION
  Report Type: Spontaneous
  Country: GB (occurrence: GB)
  Receive Date: 20151119
  Receipt Date: 20151119
  Transmission Date: 20160304
  Serious: Yes (Other)
  Sender: FDA-Public Use
  Company Number: GB-PFIZER INC-2015389008

PATIENT
  Sex: Female

DRUGS (2)
  1. GABAPENTIN. [Suspect]
     Active Substance: GABAPENTIN
  2. PREGABALIN. [Suspect]
     Active Substance: PREGABALIN

REACTIONS (2)
  - Cerebellar haemorrhage [Unknown]
  - Arteriovenous malformation [Unknown]
